FAERS Safety Report 4473934-X (Version None)
Quarter: 2004Q4

REPORT INFORMATION
  Report Type: 
  Country: None (occurrence: None)
  Receive Date: 20041008
  Receipt Date: 20040921
  Transmission Date: 20050328
  Serious: Yes (Hospitalization)
  Sender: FDA-Public Use
  Company Number: USA040979059

PATIENT
  Age: 67 Year
  Sex: Female

DRUGS (12)
  1. CYMBALTA [Suspect]
     Indication: MAJOR DEPRESSION
     Dosage: 60 MG DAY
     Dates: start: 20040830, end: 20040901
  2. AMITRIPTYLINE HCL [Concomitant]
  3. LASIX [Concomitant]
  4. COVERA-HS (VERAPAMIL HYDROCHLORIDE0 [Concomitant]
  5. DETROL LA (TOLTERODINE L-TARTRATE) [Concomitant]
  6. LIPITOR [Concomitant]
  7. POTASSIUM [Concomitant]
  8. FLONASE [Concomitant]
  9. PREVACID [Concomitant]
  10. SYNTHROID [Concomitant]
  11. CELEBREX [Concomitant]
  12. LEXAPRO [Concomitant]

REACTIONS (3)
  - CARDIAC FAILURE CONGESTIVE [None]
  - CONFUSIONAL STATE [None]
  - HALLUCINATION, VISUAL [None]
